FAERS Safety Report 12632638 (Version 2)
Quarter: 2016Q3

REPORT INFORMATION
  Report Type: Spontaneous
  Country: US (occurrence: US)
  Receive Date: 20160808
  Receipt Date: 20160808
  Transmission Date: 20161109
  Serious: No
  Sender: FDA-Public Use
  Company Number: US-BEH-2015056345

PATIENT
  Sex: Female
  Weight: 82 kg

DRUGS (41)
  1. HIZENTRA [Suspect]
     Active Substance: HUMAN IMMUNOGLOBULIN G
     Indication: SELECTIVE IGG SUBCLASS DEFICIENCY
     Route: 058
  2. LIDOCAINE/PRILOCAINE [Concomitant]
     Active Substance: LIDOCAINE\PRILOCAINE
  3. LEXAPRO [Concomitant]
     Active Substance: ESCITALOPRAM OXALATE
  4. AMBIEN [Concomitant]
     Active Substance: ZOLPIDEM TARTRATE
  5. CLOBETASOL [Concomitant]
     Active Substance: CLOBETASOL
  6. TRETINOIN. [Concomitant]
     Active Substance: TRETINOIN
  7. SINGULAIR [Concomitant]
     Active Substance: MONTELUKAST SODIUM
  8. HYDROCODONE-ACETAMINOPEN [Concomitant]
     Active Substance: ACETAMINOPHEN\HYDROCODONE
  9. EPIPEN [Concomitant]
     Active Substance: EPINEPHRINE
  10. AZITHROMYCIN ANHYDROUS. [Concomitant]
     Active Substance: AZITHROMYCIN ANHYDROUS
  11. GABAPENTIN. [Concomitant]
     Active Substance: GABAPENTIN
  12. VITAMIN D3 [Concomitant]
     Active Substance: CHOLECALCIFEROL
  13. ADVIL [Concomitant]
     Active Substance: IBUPROFEN
  14. HIZENTRA [Suspect]
     Active Substance: HUMAN IMMUNOGLOBULIN G
     Indication: IMMUNODEFICIENCY COMMON VARIABLE
     Route: 058
  15. TROKENDI XR [Concomitant]
     Active Substance: TOPIRAMATE
  16. COLCRYS [Concomitant]
     Active Substance: COLCHICINE
  17. POTASSIUM CITRATE. [Concomitant]
     Active Substance: POTASSIUM CITRATE
  18. ACIDOPHILUS PROBIOTIC [Concomitant]
  19. FLONASE [Concomitant]
     Active Substance: FLUTICASONE PROPIONATE
  20. HIZENTRA [Suspect]
     Active Substance: HUMAN IMMUNOGLOBULIN G
     Route: 058
  21. TOPIRAMATE. [Concomitant]
     Active Substance: TOPIRAMATE
  22. HIZENTRA [Suspect]
     Active Substance: HUMAN IMMUNOGLOBULIN G
     Route: 058
  23. ALLEGRA [Concomitant]
     Active Substance: FEXOFENADINE HYDROCHLORIDE
  24. DIPHENHYDRAMINE. [Concomitant]
     Active Substance: DIPHENHYDRAMINE
  25. SYNTHROID [Concomitant]
     Active Substance: LEVOTHYROXINE SODIUM
  26. MUPIROCIN. [Concomitant]
     Active Substance: MUPIROCIN
  27. CRESTOR [Concomitant]
     Active Substance: ROSUVASTATIN CALCIUM
  28. ESTER-C [Concomitant]
     Active Substance: CALCIUM\VITAMINS
  29. SPIRIVA [Concomitant]
     Active Substance: TIOTROPIUM BROMIDE MONOHYDRATE
  30. HIZENTRA [Suspect]
     Active Substance: HUMAN IMMUNOGLOBULIN G
     Route: 058
  31. ACETAMINOPHEN. [Concomitant]
     Active Substance: ACETAMINOPHEN
  32. ZOCOR [Concomitant]
     Active Substance: SIMVASTATIN
  33. ZETIA [Concomitant]
     Active Substance: EZETIMIBE
  34. PROTON PUMP INHIBITORS [Concomitant]
     Active Substance: UNSPECIFIED INGREDIENT
  35. TURMERIC [Concomitant]
     Active Substance: TURMERIC
  36. PROAIR HFA [Concomitant]
     Active Substance: ALBUTEROL SULFATE
  37. FISH OIL [Concomitant]
     Active Substance: FISH OIL
  38. TRAZODONE [Concomitant]
     Active Substance: TRAZODONE HYDROCHLORIDE
  39. CYMBALTA [Concomitant]
     Active Substance: DULOXETINE HYDROCHLORIDE
  40. VOLTAREN [Concomitant]
     Active Substance: DICLOFENAC SODIUM
  41. DIAZEPAM. [Concomitant]
     Active Substance: DIAZEPAM

REACTIONS (3)
  - Administration site swelling [Unknown]
  - Administration site erythema [Unknown]
  - Bronchitis [Unknown]
